FAERS Safety Report 4364067-1 (Version None)
Quarter: 2004Q2

REPORT INFORMATION
  Report Type: 
  Country: None (occurrence: None)
  Receive Date: 20040520
  Receipt Date: 20040520
  Transmission Date: 20050107
  Serious: Yes (Other)
  Sender: FDA-Public Use
  Company Number: None

PATIENT
  Age: 48 Year
  Sex: Male

DRUGS (1)
  1. MEXSANA MEDICATED POWDER [Suspect]
     Dosage: ONCE DAILY TOPICAL
     Route: 061
     Dates: start: 20040301, end: 20040321

REACTIONS (1)
  - DERMATITIS ALLERGIC [None]
